FAERS Safety Report 25227876 (Version 3)
Quarter: 2025Q4

REPORT INFORMATION
  Report Type: Report from Study
  Country: JP (occurrence: JP)
  Receive Date: 20250423
  Receipt Date: 20251201
  Transmission Date: 20260117
  Serious: Yes (Death)
  Sender: AMGEN
  Company Number: JP-BEH-2025199319

PATIENT
  Age: 65 Year
  Sex: Male
  Weight: 73.5 kg

DRUGS (8)
  1. AVACOPAN [Suspect]
     Active Substance: AVACOPAN
     Indication: Microscopic polyangiitis
     Dosage: 30 MG, BID
     Route: 048
     Dates: start: 20230808, end: 20240527
  2. PREDNISOLONE [Concomitant]
     Active Substance: PREDNISOLONE
     Indication: Microscopic polyangiitis
     Dosage: 5 MG, QD
     Route: 048
     Dates: end: 20240524
  3. CYCLOSPORINE [Concomitant]
     Active Substance: CYCLOSPORINE
     Indication: Microscopic polyangiitis
     Dosage: 50 MG, QD
     Route: 048
     Dates: end: 20240531
  4. ACTONEL [Concomitant]
     Active Substance: RISEDRONATE SODIUM
     Dosage: UNK
     Route: 048
     Dates: end: 20240531
  5. VONOPRAZAN FUMARATE [Concomitant]
     Active Substance: VONOPRAZAN FUMARATE
     Dosage: UNK
     Route: 048
     Dates: end: 20240531
  6. Lochol [Concomitant]
     Dosage: UNK
     Route: 048
     Dates: end: 20240531
  7. AMLODIPINE [Concomitant]
     Active Substance: AMLODIPINE BESYLATE
     Dosage: UNK
     Route: 048
     Dates: end: 20240531
  8. FLUVASTATIN SODIUM [Concomitant]
     Active Substance: FLUVASTATIN SODIUM
     Dosage: UNK
     Route: 048
     Dates: end: 20240531

REACTIONS (2)
  - Pneumonia [Fatal]
  - Pneumonia [Fatal]

NARRATIVE: CASE EVENT DATE: 20250401
